FAERS Safety Report 5470483-7 (Version None)
Quarter: 2007Q3

REPORT INFORMATION
  Report Type: 
  Country: None (occurrence: None)
  Receive Date: 20070927
  Receipt Date: 20070927
  Transmission Date: 20080115
  Serious: Yes (Other)
  Sender: FDA-Public Use
  Company Number: None

PATIENT

DRUGS (1)
  1. COUMADIN [Suspect]
     Dosage: 8MG 6D/WK PO 6MG 1D/WK
     Dates: start: 20070101

REACTIONS (2)
  - INTERNATIONAL NORMALISED RATIO ABNORMAL [None]
  - PROTHROMBIN LEVEL ABNORMAL [None]
